FAERS Safety Report 18998735 (Version 1)
Quarter: 2021Q1

REPORT INFORMATION
  Report Type: Spontaneous
  Country: US (occurrence: US)
  Receive Date: 20210311
  Receipt Date: 20210311
  Transmission Date: 20210420
  Serious: Yes (Hospitalization, Other)
  Sender: FDA-Public Use
  Company Number: US-UPSHER-SMITH LABORATORIES, LLC-2021USL00158

PATIENT
  Sex: Female

DRUGS (7)
  1. AMIODARONE HYDROCHLORIDE. [Suspect]
     Active Substance: AMIODARONE HYDROCHLORIDE
     Indication: ATRIAL FIBRILLATION
     Dosage: UNK
     Route: 048
     Dates: start: 201001
  2. UNSPECIFIED MEDICATIONS [Suspect]
     Active Substance: UNSPECIFIED INGREDIENT
     Indication: DEPRESSION
  3. UNSPECIFIED MEDICATIONS [Suspect]
     Active Substance: UNSPECIFIED INGREDIENT
     Indication: BLINDNESS
  4. UNSPECIFIED MEDICATIONS [Suspect]
     Active Substance: UNSPECIFIED INGREDIENT
     Indication: CARDIAC FAILURE CONGESTIVE
  5. UNSPECIFIED MEDICATIONS [Suspect]
     Active Substance: UNSPECIFIED INGREDIENT
     Indication: HYPOTHYROIDISM
  6. UNSPECIFIED MEDICATIONS [Suspect]
     Active Substance: UNSPECIFIED INGREDIENT
     Indication: SLEEP APNOEA SYNDROME
  7. UNSPECIFIED MEDICATIONS [Suspect]
     Active Substance: UNSPECIFIED INGREDIENT
     Indication: HAEMORRHAGE

REACTIONS (13)
  - Hypothyroidism [Unknown]
  - Off label use [Unknown]
  - Sleep apnoea syndrome [Unknown]
  - Pneumonia [Unknown]
  - Pulmonary fibrosis [Unknown]
  - Cardiac failure congestive [Unknown]
  - Pulmonary toxicity [Unknown]
  - Haemorrhage [Unknown]
  - Blindness [Unknown]
  - Unevaluable event [Unknown]
  - Stress [Unknown]
  - Dizziness [Unknown]
  - Weight decreased [Unknown]

NARRATIVE: CASE EVENT DATE: 201001
